FAERS Safety Report 8791289 (Version 1)
Quarter: 2012Q4

REPORT INFORMATION
  Report Type: Spontaneous
  Country: NO (occurrence: None)
  Receive Date: 20120911
  Receipt Date: 20120911
  Transmission Date: 20130627
  Serious: No
  Sender: FDA-Public Use
  Company Number: 2012DEPNO00415

PATIENT
  Age: 14 Year
  Sex: Male

DRUGS (4)
  1. DEPOCYTE [Suspect]
  2. CELECOXIB [Suspect]
  3. ETOPOSIDE [Suspect]
  4. THALIDOMIDE [Suspect]

REACTIONS (9)
  - Decreased appetite [None]
  - Arachnoiditis [None]
  - Fatigue [None]
  - Pyrexia [None]
  - Deafness [None]
  - Listless [None]
  - Mucosal inflammation [None]
  - Neutropenia [None]
  - Sinusitis [None]
